FAERS Safety Report 8229024-3 (Version None)
Quarter: 2012Q1

REPORT INFORMATION
  Report Type: 
  Country: None (occurrence: None)
  Receive Date: 20120322
  Receipt Date: 20120319
  Transmission Date: 20120608
  Serious: Yes (Life-Threatening)
  Sender: FDA-Public Use
  Company Number: RO-PFIZER INC-2009269547

PATIENT
  Age: 69 Year
  Sex: Female
  Weight: 75 kg

DRUGS (5)
  1. AXITINIB [Suspect]
     Indication: NON-SMALL CELL LUNG CANCER
     Dosage: 4 MG, 2X/DAY
     Route: 048
     Dates: start: 20090622, end: 20090913
  2. CISPLATIN [Suspect]
     Indication: NON-SMALL CELL LUNG CANCER
     Dosage: 130 MG, CYCLIC: EVERY 3 WEEKS
     Route: 042
     Dates: start: 20090622
  3. PEMETREXED [Suspect]
     Indication: NON-SMALL CELL LUNG CANCER
     Dosage: 900 MG, CYCLIC: EVERY 3 WEEKS
     Route: 042
     Dates: start: 20090622
  4. NORVASC [Concomitant]
     Indication: HYPERTENSION
     Dosage: 5 MG, 1X/DAY
     Route: 048
     Dates: start: 20090604, end: 20090914
  5. METOPROLOL SUCCINATE [Suspect]
     Indication: HYPERTENSION
     Dosage: 50 MG, 1X/DAY
     Route: 048
     Dates: start: 20090604

REACTIONS (5)
  - PLEURISY [None]
  - CEREBRAL ATROPHY [None]
  - ATRIAL FIBRILLATION [None]
  - LEFT VENTRICULAR DYSFUNCTION [None]
  - PERICARDITIS [None]
